FAERS Safety Report 11491826 (Version 1)
Quarter: 2015Q3

REPORT INFORMATION
  Report Type: Spontaneous
  Country: US (occurrence: None)
  Receive Date: 20150909
  Receipt Date: 20150909
  Transmission Date: 20151125
  Serious: Yes (Disabling, Other)
  Sender: FDA-Public Use
  Company Number: None

PATIENT
  Age: 71 Year
  Sex: Female
  Weight: 64.41 kg

DRUGS (1)
  1. RIVAROXABAN 20MG JANSSEN [Suspect]
     Active Substance: RIVAROXABAN
     Indication: THROMBOSIS PROPHYLAXIS
     Route: 048
     Dates: start: 20150826, end: 20150908

REACTIONS (11)
  - Dyspnoea [None]
  - Asthenia [None]
  - Pruritus [None]
  - Jaundice [None]
  - Eyelid oedema [None]
  - Malaise [None]
  - Urinary retention [None]
  - Arthralgia [None]
  - Back pain [None]
  - Eye haemorrhage [None]
  - Hypertension [None]

NARRATIVE: CASE EVENT DATE: 20150905
